FAERS Safety Report 9982055 (Version 2)
Quarter: 2014Q1

REPORT INFORMATION
  Report Type: Report from Study
  Country: US (occurrence: US)
  Receive Date: 20140307
  Receipt Date: 20140307
  Transmission Date: 20141002
  Serious: No
  Sender: FDA-Public Use
  Company Number: US-ABBVIE-13P-163-1138228-00

PATIENT
  Age: 27 Year
  Sex: Male

DRUGS (5)
  1. HUMIRA [Suspect]
     Indication: COLITIS ULCERATIVE
     Dates: start: 20130808
  2. HUMIRA [Suspect]
  3. HUMIRA [Suspect]
  4. SULFASALAZINE [Concomitant]
     Indication: COLITIS ULCERATIVE
  5. FOLIC ACID [Concomitant]

REACTIONS (9)
  - Constipation [Not Recovered/Not Resolved]
  - Injection site pain [Recovered/Resolved]
  - Drug ineffective [Unknown]
  - Flatulence [Unknown]
  - Abnormal faeces [Unknown]
  - Abdominal pain [Unknown]
  - Pruritus [Unknown]
  - Skin burning sensation [Unknown]
  - Rash [Unknown]
